FAERS Safety Report 8218202-5 (Version None)
Quarter: 2012Q1

REPORT INFORMATION
  Report Type: 
  Country: None (occurrence: None)
  Receive Date: 20120319
  Receipt Date: 20120305
  Transmission Date: 20120608
  Serious: No
  Sender: FDA-Public Use
  Company Number: US-B.I. PHARMACEUTICALS,INC./RIDGEFIELD-2012-BP-04129BP

PATIENT
  Age: 80 Year
  Sex: Male

DRUGS (5)
  1. DOXAZOSIN MESYLATE [Concomitant]
     Indication: HYPERTENSION
  2. ALLOPURINOL [Concomitant]
     Indication: GOUT
  3. PRADAXA [Suspect]
     Indication: ATRIAL FIBRILLATION
     Dosage: 150 MG
     Route: 048
     Dates: start: 20120222
  4. OXYBUTYNIN [Concomitant]
     Indication: BLADDER DISORDER
  5. MULTAQ [Suspect]
     Indication: ATRIAL FIBRILLATION
     Dates: start: 20120222

REACTIONS (4)
  - ARTHRALGIA [None]
  - FATIGUE [None]
  - MOOD ALTERED [None]
  - ASTHENIA [None]
